FAERS Safety Report 23700075 (Version 2)
Quarter: 2024Q3

REPORT INFORMATION
  Report Type: Spontaneous
  Country: JP (occurrence: JP)
  Receive Date: 20240403
  Receipt Date: 20240707
  Transmission Date: 20241017
  Serious: Yes (Hospitalization)
  Sender: ROCHE
  Company Number: JP-CHUGAI-2024009963

PATIENT
  Age: 7 Decade
  Sex: Male

DRUGS (2)
  1. TECENTRIQ [Suspect]
     Active Substance: ATEZOLIZUMAB
     Indication: Non-small cell lung cancer
     Dosage: UNK
     Route: 042
     Dates: start: 20231213, end: 20240117
  2. TECENTRIQ [Suspect]
     Active Substance: ATEZOLIZUMAB
     Dosage: UNK
     Route: 065

REACTIONS (1)
  - Cytokine release syndrome [Recovered/Resolved]

NARRATIVE: CASE EVENT DATE: 20240117
